FAERS Safety Report 19429515 (Version 1)
Quarter: 2021Q2

REPORT INFORMATION
  Report Type: Spontaneous
  Country: US (occurrence: US)
  Receive Date: 20210617
  Receipt Date: 20210617
  Transmission Date: 20210717
  Serious: No
  Sender: FDA-Public Use
  Company Number: US-BAYER-2021-159652

PATIENT
  Age: 64 Year
  Sex: Female

DRUGS (2)
  1. CLIMARA [Suspect]
     Active Substance: ESTRADIOL
     Route: 062
  2. PROGESTIN [Suspect]
     Active Substance: PROGESTERONE

REACTIONS (2)
  - Drug ineffective [None]
  - Adverse event [None]
